FAERS Safety Report 20974846 (Version 1)
Quarter: 2022Q2

REPORT INFORMATION
  Report Type: Report from Study
  Country: AU (occurrence: AU)
  Receive Date: 20220617
  Receipt Date: 20220617
  Transmission Date: 20220721
  Serious: Yes (Other)
  Sender: FDA-Public Use
  Company Number: AU-UCBSA-2022032964

PATIENT
  Age: 56 Year
  Sex: Female

DRUGS (1)
  1. CERTOLIZUMAB PEGOL [Suspect]
     Active Substance: CERTOLIZUMAB PEGOL
     Indication: Rheumatoid arthritis
     Dosage: 200 MILLIGRAM, EV 2 WEEKS(QOW)
     Route: 058
     Dates: start: 20211202, end: 202205

REACTIONS (2)
  - Eczema [Recovering/Resolving]
  - Scar [Recovering/Resolving]

NARRATIVE: CASE EVENT DATE: 20220501
